FAERS Safety Report 17528280 (Version 2)
Quarter: 2020Q1

REPORT INFORMATION
  Report Type: Spontaneous
  Country: CN (occurrence: CN)
  Receive Date: 20200311
  Receipt Date: 20200326
  Transmission Date: 20200409
  Serious: Yes (Hospitalization)
  Sender: FDA-Public Use
  Company Number: CN-CELGENEUS-CHN-20200302094

PATIENT
  Age: 72 Year
  Sex: Male
  Weight: 56 kg

DRUGS (16)
  1. ABRAXANE [Suspect]
     Active Substance: PACLITAXEL
     Route: 041
     Dates: start: 20200218, end: 20200218
  2. ABRAXANE [Suspect]
     Active Substance: PACLITAXEL
     Route: 041
     Dates: start: 20200211, end: 20200211
  3. DEXAMETHASONE SODIUM PHOSPHATE. [Concomitant]
     Active Substance: DEXAMETHASONE SODIUM PHOSPHATE
     Indication: ANTIALLERGIC THERAPY
     Dosage: 10 MILLIGRAM
     Route: 041
     Dates: start: 20200217, end: 20200217
  4. ABRAXANE [Suspect]
     Active Substance: PACLITAXEL
     Route: 041
     Dates: start: 20191216, end: 20200107
  5. CARBOPLATIN. [Suspect]
     Active Substance: CARBOPLATIN
     Indication: SQUAMOUS CELL CARCINOMA OF LUNG
     Route: 041
     Dates: start: 20191202, end: 20200204
  6. CARBOPLATIN. [Suspect]
     Active Substance: CARBOPLATIN
     Route: 041
     Dates: start: 20200114, end: 20200114
  7. GADOPENTETIC ACID DIMEGLUMINE SLAT [Concomitant]
     Indication: IMAGING PROCEDURE
     Dosage: 15 MILLILITER
     Route: 041
     Dates: start: 20200218, end: 20200218
  8. HUMAN GRANULOCYTE STIMULATING FACTOR [Concomitant]
     Indication: WHITE BLOOD CELL COUNT
     Dosage: 300 MICROGRAM
     Route: 058
     Dates: start: 20200224, end: 20200226
  9. CARBOPLATIN. [Suspect]
     Active Substance: CARBOPLATIN
     Route: 041
     Dates: start: 20200204, end: 20200204
  10. SERPLULIMAB. [Concomitant]
     Active Substance: SERPLULIMAB
     Route: 041
     Dates: start: 20191224
  11. ABRAXANE [Suspect]
     Active Substance: PACLITAXEL
     Route: 041
     Dates: start: 20200114, end: 20200121
  12. ABRAXANE [Suspect]
     Active Substance: PACLITAXEL
     Route: 041
     Dates: start: 20200204, end: 20200204
  13. SERPLULIMAB. [Concomitant]
     Active Substance: SERPLULIMAB
     Dosage: DOSE NOT PROVIDED
     Route: 041
     Dates: start: 20200227
  14. SERPLULIMAB. [Concomitant]
     Active Substance: SERPLULIMAB
     Indication: SQUAMOUS CELL CARCINOMA OF LUNG
     Route: 041
     Dates: start: 20191202, end: 20200204
  15. ABRAXANE [Suspect]
     Active Substance: PACLITAXEL
     Indication: NON-SMALL CELL LUNG CANCER
     Route: 041
     Dates: start: 20191202, end: 20200218
  16. CARBOPLATIN. [Suspect]
     Active Substance: CARBOPLATIN
     Route: 041
     Dates: start: 20191224, end: 20191224

REACTIONS (1)
  - Bone marrow failure [Recovered/Resolved]

NARRATIVE: CASE EVENT DATE: 20200224
